FAERS Safety Report 12563276 (Version 2)
Quarter: 2016Q3

REPORT INFORMATION
  Report Type: Report from Study
  Country: FI (occurrence: FI)
  Receive Date: 20160715
  Receipt Date: 20160801
  Transmission Date: 20161109
  Serious: Yes (Other)
  Sender: FDA-Public Use
  Company Number: FI-ABBVIE-16K-055-1674962-00

PATIENT
  Sex: Female
  Weight: 70 kg

DRUGS (1)
  1. DUODOPA [Suspect]
     Active Substance: CARBIDOPA\LEVODOPA
     Indication: PARKINSON^S DISEASE
     Dosage: MD: 7.0, CD IN THE DAY: 3.9, CD IN THE NIGHT: 2.4, EXTRA DOSE: 1.1. 24H TREATMENT
     Route: 050
     Dates: start: 201507

REACTIONS (12)
  - Femur fracture [Recovered/Resolved]
  - Musculoskeletal stiffness [Recovered/Resolved]
  - Weight decreased [Recovered/Resolved]
  - Muscular weakness [Unknown]
  - Decreased appetite [Recovered/Resolved]
  - Musculoskeletal pain [Recovered/Resolved]
  - Hip fracture [Recovered/Resolved]
  - Fall [Recovered/Resolved]
  - Neck pain [Recovered/Resolved]
  - Dyskinesia [Not Recovered/Not Resolved]
  - Fall [Recovered/Resolved]
  - Arthralgia [Recovered/Resolved]

NARRATIVE: CASE EVENT DATE: 2015
